FAERS Safety Report 9702971 (Version 2)
Quarter: 2013Q4

REPORT INFORMATION
  Report Type: Spontaneous
  Country: FR (occurrence: FR)
  Receive Date: 20131122
  Receipt Date: 20131122
  Transmission Date: 20140711
  Serious: Yes (Other)
  Sender: FDA-Public Use
  Company Number: FR-PFIZER INC-2013296847

PATIENT
  Age: 62 Year
  Sex: Female

DRUGS (2)
  1. EFFEXOR LP [Suspect]
     Indication: DEPRESSION
     Dosage: 187.5 MG, DAILY
     Route: 048
     Dates: start: 201206
  2. LYSANXIA [Concomitant]
     Dosage: UNK
     Route: 048
     Dates: start: 201305

REACTIONS (2)
  - Sinus tachycardia [Unknown]
  - Attention deficit/hyperactivity disorder [Unknown]
